FAERS Safety Report 10085854 (Version 1)
Quarter: 2014Q2

REPORT INFORMATION
  Report Type: Spontaneous
  Country: JP (occurrence: None)
  Receive Date: 20140416
  Receipt Date: 20140416
  Transmission Date: 20141212
  Serious: Yes (Death)
  Sender: FDA-Public Use
  Company Number: 2295936

PATIENT
  Sex: 0

DRUGS (1)
  1. DEXMEDETOMIDINE HYDROCHLORIDE [Suspect]

REACTIONS (1)
  - Catheter site necrosis [None]
